FAERS Safety Report 5112908-2 (Version None)
Quarter: 2006Q3

REPORT INFORMATION
  Report Type: 
  Country: None (occurrence: None)
  Receive Date: 20060922
  Receipt Date: 20060907
  Transmission Date: 20061208
  Serious: Yes (Other)
  Sender: FDA-Public Use
  Company Number: FR-BRISTOL-MYERS SQUIBB COMPANY-13510441

PATIENT
  Age: 58 Year
  Sex: Male

DRUGS (4)
  1. ERBITUX [Suspect]
     Route: 041
     Dates: start: 20060718, end: 20060816
  2. OXALIPLATIN [Suspect]
     Route: 041
     Dates: start: 20060712, end: 20060807
  3. FLUOROURACIL [Suspect]
     Route: 041
     Dates: start: 20060718, end: 20060807
  4. FOLINIC ACID [Suspect]
     Route: 041
     Dates: start: 20060718, end: 20060807

REACTIONS (1)
  - CYTOLYTIC HEPATITIS [None]
